FAERS Safety Report 21253831 (Version 1)
Quarter: 2022Q3

REPORT INFORMATION
  Report Type: Spontaneous
  Country: CA (occurrence: CA)
  Receive Date: 20220825
  Receipt Date: 20220825
  Transmission Date: 20221027
  Serious: Yes (Hospitalization)
  Sender: FDA-Public Use
  Company Number: None

PATIENT
  Age: 62 Year
  Sex: Male
  Weight: 70 kg

DRUGS (12)
  1. PACLITAXEL [Suspect]
     Active Substance: PACLITAXEL
     Indication: Hepatic angiosarcoma
     Route: 042
  2. FUROSEMIDE [Concomitant]
     Active Substance: FUROSEMIDE
  3. HALOPERIDOL [Concomitant]
     Active Substance: HALOPERIDOL
  4. HYDROCORTISONE [Concomitant]
     Active Substance: HYDROCORTISONE
  5. HYDROMORPHONE [Concomitant]
     Active Substance: HYDROMORPHONE
  6. MEROPENEM [Concomitant]
     Active Substance: MEROPENEM
     Dosage: POWDER FOR SOLUTION
     Route: 042
  7. ONDANSETRON [Concomitant]
     Active Substance: ONDANSETRON
  8. PANTOPRAZOLE [Concomitant]
     Active Substance: PANTOPRAZOLE
  9. POLYETHYLENE GLYCOL [Concomitant]
     Active Substance: POLYETHYLENE GLYCOL
  10. QUETIAPINE [Concomitant]
     Active Substance: QUETIAPINE
  11. SPIRONOLACTONE [Concomitant]
     Active Substance: SPIRONOLACTONE
  12. SULFAMETHOXAZOLE\TRIMETHOPRIM [Concomitant]
     Active Substance: SULFAMETHOXAZOLE\TRIMETHOPRIM

REACTIONS (2)
  - Mucosal inflammation [Recovered/Resolved]
  - Pancytopenia [Recovered/Resolved]
